FAERS Safety Report 6122372-2 (Version None)
Quarter: 2009Q1

REPORT INFORMATION
  Report Type: 
  Country: None (occurrence: None)
  Receive Date: 20090318
  Receipt Date: 20090202
  Transmission Date: 20090719
  Serious: No
  Sender: FDA-Public Use
  Company Number: US-ASTRAZENECA-2009UW02969

PATIENT
  Age: 77 Year
  Sex: Female
  Weight: 55.8 kg

DRUGS (5)
  1. SYMBICORT [Suspect]
     Indication: ASTHMA
     Dosage: 160 UG 1 PUFF IN THE AM AND 1 PUFF IN THE PM
     Route: 055
     Dates: start: 20081120
  2. XOPENEX [Concomitant]
  3. CLONIDINE [Concomitant]
  4. ASPIRIN [Concomitant]
  5. ALBUTEROL [Concomitant]

REACTIONS (6)
  - BLOOD PRESSURE INCREASED [None]
  - HEADACHE [None]
  - HERPES ZOSTER [None]
  - ORAL PAIN [None]
  - TREMOR [None]
  - URTICARIA [None]
